FAERS Safety Report 9099727 (Version 1)
Quarter: 2013Q1

REPORT INFORMATION
  Report Type: Spontaneous
  Country: CA (occurrence: CA)
  Receive Date: 20130214
  Receipt Date: 20130214
  Transmission Date: 20140127
  Serious: Yes (Other)
  Sender: FDA-Public Use
  Company Number: CA-JNJFOC-20130206963

PATIENT
  Sex: Female

DRUGS (2)
  1. MICRONOR [Suspect]
     Indication: CONTRACEPTION
     Route: 065
     Dates: start: 2012
  2. MICRONOR [Suspect]
     Indication: CONTRACEPTION
     Route: 065
     Dates: start: 2011

REACTIONS (6)
  - Postpartum depression [Unknown]
  - Nausea [Unknown]
  - Headache [Unknown]
  - Menstruation irregular [Unknown]
  - Haemorrhage [Unknown]
  - Drug intolerance [Unknown]
